FAERS Safety Report 8765305 (Version 1)
Quarter: 2012Q4

REPORT INFORMATION
  Report Type: Report from Study
  Country: US (occurrence: US)
  Receive Date: 20120831
  Receipt Date: 20120831
  Transmission Date: 20130627
  Serious: Yes (Hospitalization)
  Sender: FDA-Public Use
  Company Number: US-JNJFOC-20120810394

PATIENT
  Age: 22 None
  Sex: Male

DRUGS (5)
  1. INVEGA SUSTENNA [Suspect]
     Indication: SCHIZOAFFECTIVE DISORDER
     Route: 030
  2. INVEGA SUSTENNA [Suspect]
     Indication: SCHIZOAFFECTIVE DISORDER
     Route: 030
     Dates: start: 20120818
  3. INVEGA [Suspect]
     Indication: PRODUCT USED FOR UNKNOWN INDICATION
     Route: 048
  4. ZYPREXA [Concomitant]
     Dosage: night
     Route: 048
  5. ZYPREXA [Concomitant]
     Dosage: morning
     Route: 048

REACTIONS (3)
  - Hospitalisation [Unknown]
  - Hallucination, auditory [Unknown]
  - Drug screen positive [Unknown]
